FAERS Safety Report 17174248 (Version 1)
Quarter: 2019Q4

REPORT INFORMATION
  Report Type: Spontaneous
  Country: US (occurrence: US)
  Receive Date: 20191219
  Receipt Date: 20191219
  Transmission Date: 20200122
  Serious: Yes (Disabling)
  Sender: FDA-Public Use
  Company Number: US-TEVA-2019-US-1154387

PATIENT

DRUGS (2)
  1. DOCETAXEL INJECTION [Suspect]
     Active Substance: DOCETAXEL
     Dates: start: 20140306, end: 20140508
  2. TAXOTERE [Suspect]
     Active Substance: DOCETAXEL
     Dates: start: 20140306, end: 20140508

REACTIONS (1)
  - Alopecia [Not Recovered/Not Resolved]
